FAERS Safety Report 5955046-9 (Version None)
Quarter: 2008Q4

REPORT INFORMATION
  Report Type: 
  Country: None (occurrence: None)
  Receive Date: 20081117
  Receipt Date: 20081106
  Transmission Date: 20090506
  Serious: Yes (Other)
  Sender: FDA-Public Use
  Company Number: B0537370A

PATIENT
  Age: 73 Year
  Sex: Male
  Weight: 103 kg

DRUGS (8)
  1. AVANDAMET [Suspect]
     Route: 065
     Dates: start: 20040206, end: 20080723
  2. VITAMIN B-12 [Concomitant]
  3. ROSIGLITAZONE [Concomitant]
     Dates: start: 20080801
  4. ASPIRIN [Concomitant]
  5. PLAVIX [Concomitant]
  6. APROVEL [Concomitant]
  7. CARDURA [Concomitant]
  8. PRAVASTATIN [Concomitant]

REACTIONS (2)
  - ANAEMIA [None]
  - BLOOD CREATININE INCREASED [None]
